FAERS Safety Report 11685899 (Version 1)
Quarter: 2015Q4

REPORT INFORMATION
  Report Type: Spontaneous
  Country: BR (occurrence: BR)
  Receive Date: 20151030
  Receipt Date: 20151030
  Transmission Date: 20160304
  Serious: Yes (Other)
  Sender: FDA-Public Use
  Company Number: BR-WARNER CHILCOTT, LLC-1043573

PATIENT
  Sex: Female

DRUGS (1)
  1. ACTONEL [Suspect]
     Active Substance: RISEDRONATE SODIUM
     Route: 048
     Dates: start: 20151002

REACTIONS (18)
  - Tremor [Unknown]
  - Peripheral coldness [Unknown]
  - Vomiting [Unknown]
  - Lymphadenopathy [Unknown]
  - Headache [Unknown]
  - Back pain [Unknown]
  - Head injury [Unknown]
  - Laceration [Unknown]
  - Syncope [Unknown]
  - Pain [Unknown]
  - Dizziness [Unknown]
  - Palpitations [Unknown]
  - Diarrhoea [Unknown]
  - Dysphagia [Unknown]
  - Feeling cold [Unknown]
  - Pyrexia [Unknown]
  - Neck pain [Unknown]
  - Chest pain [Unknown]
